FAERS Safety Report 7324686-7 (Version None)
Quarter: 2011Q1

REPORT INFORMATION
  Report Type: 
  Country: None (occurrence: None)
  Receive Date: 20110301
  Receipt Date: 20110221
  Transmission Date: 20110831
  Serious: Yes (Life-Threatening, Hospitalization)
  Sender: FDA-Public Use
  Company Number: DK-TEVA-267939ISR

PATIENT
  Sex: Female

DRUGS (1)
  1. LOSARTAN POTASSIUM [Suspect]
     Indication: HYPERTENSION
     Route: 048
     Dates: start: 20101201, end: 20110124

REACTIONS (4)
  - LIVER DISORDER [None]
  - JAUNDICE [None]
  - HEPATIC NECROSIS [None]
  - HEPATIC FAILURE [None]
